FAERS Safety Report 13186315 (Version 1)
Quarter: 2017Q1

REPORT INFORMATION
  Report Type: Spontaneous
  Country: US (occurrence: US)
  Receive Date: 20170204
  Receipt Date: 20170204
  Transmission Date: 20170428
  Serious: No
  Sender: FDA-Public Use
  Company Number: US-TEVA-731027ACC

PATIENT
  Age: 27 Year
  Sex: Female

DRUGS (8)
  1. MAGNES [Concomitant]
  2. ALLERGY [Concomitant]
     Active Substance: UNSPECIFIED INGREDIENT
  3. PROBIOTIC [Concomitant]
     Active Substance: PROBIOTICS NOS
  4. TURMERIC [Concomitant]
     Active Substance: TURMERIC
  5. VITAMIN D [Concomitant]
     Active Substance: CHOLECALCIFEROL
  6. VITAMIN C [Concomitant]
     Active Substance: ASCORBIC ACID
  7. COPAXONE [Suspect]
     Active Substance: GLATIRAMER ACETATE
     Indication: MULTIPLE SCLEROSIS
     Route: 058
     Dates: start: 201605
  8. COQ10 [Concomitant]
     Active Substance: UBIDECARENONE

REACTIONS (1)
  - Injection site urticaria [Not Recovered/Not Resolved]

NARRATIVE: CASE EVENT DATE: 201608
